FAERS Safety Report 19150808 (Version 1)
Quarter: 2021Q2

REPORT INFORMATION
  Report Type: Report from Study
  Country: US (occurrence: US)
  Receive Date: 20210419
  Receipt Date: 20210419
  Transmission Date: 20210717
  Serious: Yes (Death, Hospitalization, Other)
  Sender: FDA-Public Use
  Company Number: US-ALXN-A202010945AA

PATIENT
  Sex: Male

DRUGS (4)
  1. MYFORTIC [Suspect]
     Active Substance: MYCOPHENOLATE SODIUM
     Indication: PRODUCT USED FOR UNKNOWN INDICATION
  2. SOLIRIS [Suspect]
     Active Substance: ECULIZUMAB
     Indication: MYASTHENIA GRAVIS
     Route: 065
  3. PREDNISONE. [Suspect]
     Active Substance: PREDNISONE
     Indication: PRODUCT USED FOR UNKNOWN INDICATION
     Dosage: 15MG/5MG ALTERNATING DAYS
     Route: 065
  4. CELLCEPT [Concomitant]
     Active Substance: MYCOPHENOLATE MOFETIL\MYCOPHENOLATE MOFETIL HYDROCHLORIDE
     Indication: PRODUCT USED FOR UNKNOWN INDICATION
     Dosage: UNK
     Route: 065

REACTIONS (12)
  - Back pain [Unknown]
  - Anaemia [Unknown]
  - Pain [Unknown]
  - Urinary bladder haemorrhage [Unknown]
  - Fatigue [Unknown]
  - Melanoma recurrent [Unknown]
  - Radiation proctitis [Not Recovered/Not Resolved]
  - Death [Fatal]
  - Rash [Unknown]
  - Gastrointestinal haemorrhage [Unknown]
  - Malaise [Not Recovered/Not Resolved]
  - Urinary tract infection [Unknown]
